FAERS Safety Report 20450997 (Version 2)
Quarter: 2022Q2

REPORT INFORMATION
  Report Type: Report from Study
  Country: CO (occurrence: CO)
  Receive Date: 20220209
  Receipt Date: 20220419
  Transmission Date: 20220721
  Serious: Yes (Other)
  Sender: FDA-Public Use
  Company Number: CO-NOVARTISPH-NVSC2022CO022507

PATIENT
  Sex: Female

DRUGS (1)
  1. BROLUCIZUMAB [Suspect]
     Active Substance: BROLUCIZUMAB
     Indication: Neovascular age-related macular degeneration
     Dosage: 120 MG, QMO
     Route: 047

REACTIONS (5)
  - Retinal detachment [Unknown]
  - Eye haemorrhage [Unknown]
  - Eye pain [Unknown]
  - Eye swelling [Unknown]
  - Incorrect dose administered [Unknown]
